FAERS Safety Report 8559622-9 (Version None)
Quarter: 2012Q3

REPORT INFORMATION
  Report Type: 
  Country: None (occurrence: None)
  Receive Date: 20120802
  Receipt Date: 20120720
  Transmission Date: 20120928
  Serious: No
  Sender: FDA-Public Use
  Company Number: US-PFIZER INC-2012169692

PATIENT
  Sex: Male
  Weight: 91 kg

DRUGS (9)
  1. XALATAN [Concomitant]
     Dosage: UNK
  2. ALPHAGAN [Concomitant]
     Dosage: UNK
     Route: 047
  3. TAPAZOLE [Suspect]
     Dosage: UNK, (INCREASED TO TWO AND HALF TABLET OF 10MG BY SPLITTING TWO TIMES A DAY WHICH HE MENTIONED)
  4. DEXAMETHASONE/TOBRAMYCIN SULFATE [Concomitant]
     Dosage: UNK
     Route: 047
  5. TAPAZOLE [Suspect]
     Indication: HYPERTHYROIDISM
     Dosage: 25 MG, (10MG AT ONE TIME THEN 10MG AND THEN 5MG (HALF TABLET, TOTAL THREE TIMES A DAY)
     Route: 048
  6. BRINZOLAMIDE [Concomitant]
     Dosage: UNK
     Route: 047
  7. TAPAZOLE [Suspect]
     Dosage: UNK, (SINCE 10 YEARS TWO TABLETS OF 10MG DAILY)
  8. TAPAZOLE [Suspect]
     Indication: THYROID DISORDER
     Dosage: 10 MG, 3X/DAY
     Route: 048
  9. TAPAZOLE [Suspect]
     Dosage: UNK, (FURTHER INCREASED TO THREE TABLETS)

REACTIONS (6)
  - PRODUCT CONTAINER SEAL ISSUE [None]
  - ANXIETY [None]
  - HEADACHE [None]
  - FEELING ABNORMAL [None]
  - PHARYNGEAL DISORDER [None]
  - PRODUCT TAMPERING [None]
